FAERS Safety Report 12909989 (Version 2)
Quarter: 2016Q4

REPORT INFORMATION
  Report Type: Spontaneous
  Country: ZA (occurrence: ZA)
  Receive Date: 20161104
  Receipt Date: 20161109
  Transmission Date: 20170207
  Serious: No
  Sender: FDA-Public Use
  Company Number: ZA-AMGEN-ZAFSP2016154600

PATIENT

DRUGS (1)
  1. NEUPOGEN [Suspect]
     Active Substance: FILGRASTIM
     Indication: NEUTROPENIC SEPSIS
     Dosage: UNK
     Route: 065

REACTIONS (1)
  - Off label use [Unknown]
